FAERS Safety Report 8594507-3 (Version None)
Quarter: 2012Q3

REPORT INFORMATION
  Report Type: 
  Country: None (occurrence: None)
  Receive Date: 20120724
  Receipt Date: 20120712
  Transmission Date: 20120928
  Serious: Yes (Death)
  Sender: FDA-Public Use
  Company Number: 2012032912

PATIENT
  Age: 85 Year
  Sex: Male

DRUGS (4)
  1. PRIVIGEN [Suspect]
     Indication: B-CELL SMALL LYMPHOCYTIC LYMPHOMA
     Dosage: 10 G QD, INFUSION RAET: 60ML/H INTRAVENOUS (NOT OTHERWISE SPECIFIED)
     Route: 042
     Dates: start: 20120117, end: 20120117
  2. NOVAMINSULFON (METAMIZOLE SODIUM) [Concomitant]
  3. TILOCOMP (VALORON N /00628301/) [Concomitant]
  4. OMEPRAZOLE [Concomitant]

REACTIONS (1)
  - DEATH [None]
